FAERS Safety Report 15773051 (Version 2)
Quarter: 2019Q1

REPORT INFORMATION
  Report Type: Report from Study
  Country: US (occurrence: US)
  Receive Date: 20181228
  Receipt Date: 20190201
  Transmission Date: 20190417
  Serious: No
  Sender: FDA-Public Use
  Company Number: PHEH2018US055199

PATIENT
  Sex: Female

DRUGS (1)
  1. ILARIS [Suspect]
     Active Substance: CANAKINUMAB
     Indication: PYREXIA
     Dosage: 60 MG, Q4W
     Route: 058

REACTIONS (3)
  - Pyrexia [Unknown]
  - Incorrect dose administered [Unknown]
  - Condition aggravated [Unknown]
